FAERS Safety Report 7394329-5 (Version None)
Quarter: 2011Q2

REPORT INFORMATION
  Report Type: 
  Country: None (occurrence: None)
  Receive Date: 20110405
  Receipt Date: 20071217
  Transmission Date: 20111010
  Serious: Yes (Death, Hospitalization)
  Sender: FDA-Public Use
  Company Number: SE-BRISTOL-MYERS SQUIBB COMPANY-14051684

PATIENT
  Age: 56 Year
  Sex: Male

DRUGS (6)
  1. WARFARIN SODIUM [Suspect]
     Indication: PERCUTANEOUS CORONARY INTERVENTION
  2. PLAVIX [Suspect]
     Indication: PERCUTANEOUS CORONARY INTERVENTION
     Route: 048
  3. ASPIRIN [Suspect]
     Indication: THROMBOSIS PROPHYLAXIS
     Route: 065
  4. RAMIPRIL [Concomitant]
     Route: 065
  5. VENLAFAXINE HCL [Suspect]
     Route: 065
  6. ATORVASTATIN CALCIUM [Suspect]
     Route: 065

REACTIONS (5)
  - CEREBRAL HAEMORRHAGE [None]
  - DEATH [None]
  - PNEUMONIA [None]
  - MYOCARDIAL INFARCTION [None]
  - PULMONARY EMBOLISM [None]
